FAERS Safety Report 5336136-0 (Version None)
Quarter: 2007Q2

REPORT INFORMATION
  Report Type: 
  Country: None (occurrence: None)
  Receive Date: 20070302
  Receipt Date: 20070115
  Transmission Date: 20071010
  Serious: No
  Sender: FDA-Public Use
  Company Number: PHEH2007US00938

PATIENT
  Sex: Female

DRUGS (4)
  1. ENABLEX [Suspect]
     Indication: URINARY INCONTINENCE
     Dosage: 15 MG, QD
     Dates: start: 20060701
  2. MULTIVITAMINS(ASCORBIC ACID, ERGOCALCIFEROL, ERGOCALCIFEROL, FOLIC ACI [Suspect]
  3. FISH OIL(FISH OIL) [Suspect]
  4. CALCIUM(CALCIUM) [Suspect]

REACTIONS (2)
  - DRUG INEFFECTIVE [None]
  - URINARY INCONTINENCE [None]
